FAERS Safety Report 4616991-X (Version None)
Quarter: 2005Q2

REPORT INFORMATION
  Report Type: 
  Country: None (occurrence: None)
  Receive Date: 20050311
  Receipt Date: 20041227
  Transmission Date: 20051028
  Serious: No
  Sender: FDA-Public Use
  Company Number: 2004-BP-14307BP

PATIENT
  Sex: Female

DRUGS (9)
  1. SPIRIVA [Suspect]
     Indication: ASTHMA
     Dosage: 18 MG (18 MG, 1 D), IH
     Route: 055
     Dates: start: 20040801, end: 20041001
  2. SPIRIVA [Suspect]
     Indication: CHRONIC OBSTRUCTIVE PULMONARY DISEASE
     Dosage: 18 MG (18 MG, 1 D), IH
     Route: 055
     Dates: start: 20040801, end: 20041001
  3. SPIRIVA [Suspect]
     Indication: ASTHMA
     Dosage: 18 MG (18 MG, 1 D), IH
     Route: 055
     Dates: start: 20040901
  4. SPIRIVA [Suspect]
     Indication: CHRONIC OBSTRUCTIVE PULMONARY DISEASE
     Dosage: 18 MG (18 MG, 1 D), IH
     Route: 055
     Dates: start: 20040901
  5. ADVAIR DISKUS 100/50 [Concomitant]
  6. ATROVENT [Concomitant]
  7. PRILOSEC [Concomitant]
  8. XANAX [Concomitant]
  9. DIAZIDE (GLICLAZIDE) [Concomitant]

REACTIONS (1)
  - LARYNGITIS [None]
